FAERS Safety Report 21281028 (Version 1)
Quarter: 2022Q3

REPORT INFORMATION
  Report Type: Spontaneous
  Country: KE (occurrence: KE)
  Receive Date: 20220901
  Receipt Date: 20220901
  Transmission Date: 20221026
  Serious: Yes (Other)
  Sender: FDA-Public Use
  Company Number: KE-SUN PHARMACEUTICAL INDUSTRIES LTD-2022RR-352751

PATIENT
  Sex: Male
  Weight: 1.94 kg

DRUGS (3)
  1. NIFEDIPINE [Suspect]
     Active Substance: NIFEDIPINE
     Indication: Blood pressure abnormal
     Dosage: UNK
     Route: 064
  2. METHYLDOPA [Suspect]
     Active Substance: METHYLDOPA
     Indication: Blood pressure abnormal
     Dosage: UNK
     Route: 064
  3. PREDNISONE [Suspect]
     Active Substance: PREDNISONE
     Indication: Focal segmental glomerulosclerosis
     Dosage: 10 MILLIGRAM, UNK
     Route: 064

REACTIONS (3)
  - Low birth weight baby [Unknown]
  - Foetal exposure during pregnancy [Unknown]
  - Premature baby [Unknown]
